FAERS Safety Report 11069605 (Version 1)
Quarter: 2015Q2

REPORT INFORMATION
  Report Type: Spontaneous
  Country: US (occurrence: US)
  Receive Date: 20150427
  Receipt Date: 20150427
  Transmission Date: 20150821
  Serious: No
  Sender: FDA-Public Use
  Company Number: US-GLAXOSMITHKLINE-US2015053534

PATIENT
  Age: 93 Year
  Sex: Female

DRUGS (3)
  1. PNEUMONIA VACCINE [Concomitant]
     Active Substance: PNEUMOCOCCAL VACCINE POLYVALENT
     Indication: PROPHYLAXIS
  2. INFLUENZA VACCINE UNSPECIFIED 2014-2015 SEASON SOLUTION FOR INJECTION [Suspect]
     Active Substance: INFLUENZA VIRUS VACCINE
     Dates: start: 201410, end: 201410
  3. ADVAIR DISKUS [Suspect]
     Active Substance: FLUTICASONE PROPIONATE\SALMETEROL XINAFOATE
     Indication: DYSPNOEA
     Dosage: 250-50
     Route: 055
     Dates: start: 2014

REACTIONS (3)
  - Influenza [Recovering/Resolving]
  - Dysphonia [Not Recovered/Not Resolved]
  - Sputum increased [Not Recovered/Not Resolved]

NARRATIVE: CASE EVENT DATE: 201502
